FAERS Safety Report 6978112-8 (Version None)
Quarter: 2010Q3

REPORT INFORMATION
  Report Type: 
  Country: None (occurrence: None)
  Receive Date: 20100913
  Receipt Date: 20100901
  Transmission Date: 20110219
  Serious: Yes (Other)
  Sender: FDA-Public Use
  Company Number: CA-JNJFOC-20100901745

PATIENT
  Sex: Male

DRUGS (2)
  1. REMICADE [Suspect]
     Indication: CROHN'S DISEASE
     Dosage: 3RD LOADING DOSE
     Route: 042
  2. REMICADE [Suspect]
     Route: 042

REACTIONS (2)
  - CYSTITIS [None]
  - DYSURIA [None]
